FAERS Safety Report 5424047-1 (Version None)
Quarter: 2007Q3

REPORT INFORMATION
  Report Type: 
  Country: None (occurrence: None)
  Receive Date: 20070823
  Receipt Date: 20070814
  Transmission Date: 20080115
  Serious: Yes (Hospitalization, Other)
  Sender: FDA-Public Use
  Company Number: US-PFIZER INC-2007039512

PATIENT
  Sex: Male
  Weight: 86.363 kg

DRUGS (13)
  1. LIPITOR [Suspect]
  2. NITROSTAT [Suspect]
     Indication: CHEST PAIN
  3. EXUBERA [Suspect]
  4. ZETIA [Concomitant]
  5. ISOSORBIDE DINITRATE [Concomitant]
  6. TORSEMIDE [Concomitant]
  7. PLAVIX [Concomitant]
  8. LEVOTHYROXINE SODIUM [Concomitant]
  9. AMIODARONE HCL [Concomitant]
  10. METOPROLOL SUCCINATE [Concomitant]
  11. AVANDIA [Concomitant]
  12. ALL OTHER THERAPEUTIC PRODUCTS [Concomitant]
  13. INSULIN GLARGINE [Concomitant]

REACTIONS (5)
  - CHEST PAIN [None]
  - DRUG INEFFECTIVE [None]
  - DYSPHONIA [None]
  - PHARYNGOLARYNGEAL PAIN [None]
  - WEIGHT INCREASED [None]
